FAERS Safety Report 7948858-3 (Version None)
Quarter: 2011Q4

REPORT INFORMATION
  Report Type: 
  Country: None (occurrence: None)
  Receive Date: 20111130
  Receipt Date: 20111121
  Transmission Date: 20120403
  Serious: Yes (Other)
  Sender: FDA-Public Use
  Company Number: PHHY2011CA16186

PATIENT
  Sex: Female

DRUGS (11)
  1. DIDROCAL [Concomitant]
  2. ZOLEDRONOC ACID [Suspect]
     Dosage: UNK
     Route: 042
     Dates: start: 20100126
  3. ZOLEDRONOC ACID [Suspect]
     Dosage: UNK
     Route: 042
     Dates: start: 20110225
  4. EVISTA [Concomitant]
  5. VITAMIN D [Concomitant]
  6. ZOLEDRONOC ACID [Suspect]
     Indication: OSTEOPOROSIS
     Dosage: UNK
     Route: 042
     Dates: start: 20090108
  7. CALCIUM [Concomitant]
  8. FORTEO [Concomitant]
  9. PANTOPRAZOLE SODIUM [Concomitant]
  10. MIACALCIN [Concomitant]
  11. SYNTHROID [Concomitant]

REACTIONS (2)
  - RIB FRACTURE [None]
  - PARAESTHESIA [None]
